FAERS Safety Report 10996321 (Version 1)
Quarter: 2015Q2

REPORT INFORMATION
  Report Type: Spontaneous
  Country: US (occurrence: US)
  Receive Date: 20150408
  Receipt Date: 20150408
  Transmission Date: 20150821
  Serious: Yes (Other)
  Sender: FDA-Public Use
  Company Number: US-009507513-1504USA002530

PATIENT
  Sex: Female

DRUGS (4)
  1. DONEPEZIL [Concomitant]
     Active Substance: DONEPEZIL
  2. PRAVASTATIN [Concomitant]
     Active Substance: PRAVASTATIN\PRAVASTATIN SODIUM
  3. PRILOSEC [Concomitant]
     Active Substance: OMEPRAZOLE MAGNESIUM
     Route: 048
  4. ASMANEX [Suspect]
     Active Substance: MOMETASONE FUROATE
     Indication: RESPIRATORY DISORDER
     Dosage: 2 PUFF, BID
     Route: 055

REACTIONS (4)
  - Small intestinal haemorrhage [Unknown]
  - Drug effect decreased [Unknown]
  - Respiratory disorder [Unknown]
  - Product quality issue [Unknown]
